FAERS Safety Report 13539854 (Version 2)
Quarter: 2017Q3

REPORT INFORMATION
  Report Type: Spontaneous
  Country: US (occurrence: US)
  Receive Date: 20170512
  Receipt Date: 20170731
  Transmission Date: 20171127
  Serious: No
  Sender: FDA-Public Use
  Company Number: US-JNJFOC-20170430335

PATIENT
  Sex: Male

DRUGS (2)
  1. ZYRTEC [Suspect]
     Active Substance: CETIRIZINE HYDROCHLORIDE
     Indication: PRODUCT USED FOR UNKNOWN INDICATION
     Route: 065
  2. ZYRTEC [Suspect]
     Active Substance: CETIRIZINE HYDROCHLORIDE
     Route: 065

REACTIONS (3)
  - Packaging design issue [Unknown]
  - Suspected counterfeit product [Unknown]
  - Drug effect decreased [Unknown]
